FAERS Safety Report 4984713-9 (Version None)
Quarter: 2006Q2

REPORT INFORMATION
  Report Type: 
  Country: None (occurrence: None)
  Receive Date: 20060419
  Receipt Date: 20060411
  Transmission Date: 20061013
  Serious: Yes (Other)
  Sender: FDA-Public Use
  Company Number: DE-2005-024139

PATIENT
  Sex: Female

DRUGS (2)
  1. MIRENA [Suspect]
     Indication: BREAST PAIN
     Dosage: 20 UG/DAY, CONT, INTRA-UTERINE
     Route: 015
     Dates: start: 20050311
  2. MASTODYNON (HOMEOPATICS NOS) [Suspect]
     Indication: BREAST PAIN
     Dates: start: 20050926

REACTIONS (3)
  - BREAST CANCER FEMALE [None]
  - BREAST PAIN [None]
  - NIPPLE DISORDER [None]
